FAERS Safety Report 12664623 (Version 2)
Quarter: 2016Q3

REPORT INFORMATION
  Report Type: Spontaneous
  Country: None (occurrence: US)
  Receive Date: 20160818
  Receipt Date: 20160923
  Transmission Date: 20161109
  Serious: No
  Sender: FDA-Public Use
  Company Number: US-MEDAC PHARMA, INC.-1056482

PATIENT
  Age: 56 Year
  Sex: Female
  Weight: 106.82 kg

DRUGS (6)
  1. METHYLPREDNISOLONE. [Concomitant]
     Active Substance: METHYLPREDNISOLONE
  2. FOLIC ACID. [Concomitant]
     Active Substance: FOLIC ACID
  3. PLAQUENIL [Concomitant]
     Active Substance: HYDROXYCHLOROQUINE SULFATE
  4. LEVOTHYROXINE. [Concomitant]
     Active Substance: LEVOTHYROXINE
  5. RASUVO [Suspect]
     Active Substance: METHOTREXATE SODIUM
     Indication: ARTHRITIS
  6. LOSARTAN. [Concomitant]
     Active Substance: LOSARTAN

REACTIONS (6)
  - Arthritis [Recovered/Resolved]
  - Intraocular pressure decreased [None]
  - Intraocular pressure test [Unknown]
  - Therapeutic response unexpected [None]
  - Arthralgia [None]
  - Dry eye [Unknown]
